FAERS Safety Report 24860231 (Version 1)
Quarter: 2025Q1

REPORT INFORMATION
  Report Type: Spontaneous
  Country: US (occurrence: US)
  Receive Date: 20250120
  Receipt Date: 20250120
  Transmission Date: 20250409
  Serious: No
  Sender: ROCHE
  Company Number: US-ROCHE-10000181403

PATIENT
  Sex: Female

DRUGS (3)
  1. CELLCEPT [Suspect]
     Active Substance: MYCOPHENOLATE MOFETIL
     Indication: Dermatomyositis
     Dosage: 500 MG 1 PILL IN THE MORNING AND 1 PILL AT NIGHT
     Route: 065
     Dates: start: 20250107
  2. CELLCEPT [Suspect]
     Active Substance: MYCOPHENOLATE MOFETIL
     Indication: Dermatomyositis
     Dosage: 500 MG 2 PILLS (TOTAL 1000MG) IN THE MORNING AND 2 PILLS (TOTAL 1000MG)AT NIGH
     Route: 065
     Dates: start: 20250114
  3. CELLCEPT [Suspect]
     Active Substance: MYCOPHENOLATE MOFETIL
     Indication: Dermatomyositis

REACTIONS (2)
  - Insomnia [Unknown]
  - Intentional product misuse [Unknown]
